FAERS Safety Report 13998253 (Version 1)
Quarter: 2017Q3

REPORT INFORMATION
  Report Type: Report from Study
  Country: IN (occurrence: IN)
  Receive Date: 20170921
  Receipt Date: 20170921
  Transmission Date: 20171128
  Serious: Yes (Death, Hospitalization)
  Sender: FDA-Public Use
  Company Number: PHHY2017IN139230

PATIENT
  Age: 57 Year
  Sex: Male
  Weight: 40 kg

DRUGS (1)
  1. VYMADA [Suspect]
     Active Substance: SACUBITRIL\VALSARTAN
     Indication: CARDIAC FAILURE
     Dosage: 50 MG (24MG OF SACUBITRIL AND 26MG OF VALSARTAN), BID
     Route: 048

REACTIONS (3)
  - Mental disorder [Fatal]
  - Tuberculosis [Fatal]
  - Dyspnoea [Fatal]
